FAERS Safety Report 6702078-9 (Version None)
Quarter: 2010Q2

REPORT INFORMATION
  Report Type: 
  Country: None (occurrence: None)
  Receive Date: 20100429
  Receipt Date: 20100419
  Transmission Date: 20101027
  Serious: No
  Sender: FDA-Public Use
  Company Number: US-B.I. PHARMACEUTICALS,INC./RIDGEFIELD-2007-BP-18245BP

PATIENT
  Sex: Female

DRUGS (11)
  1. SPIRIVA [Suspect]
     Indication: CHRONIC OBSTRUCTIVE PULMONARY DISEASE
     Dosage: 18 MCG
     Route: 055
     Dates: start: 20070601, end: 20070725
  2. SPIRIVA [Suspect]
     Dosage: 18 MCG
     Route: 055
     Dates: start: 20091101, end: 20100101
  3. SPIRIVA [Suspect]
     Dosage: 18 MCG
     Route: 055
     Dates: start: 20100301
  4. ALBUTEROL [Concomitant]
     Indication: CHRONIC OBSTRUCTIVE PULMONARY DISEASE
  5. THEOPHYLLINE [Concomitant]
  6. CARDIZEM [Concomitant]
     Indication: HEART RATE IRREGULAR
  7. PAXIL [Concomitant]
     Indication: DEPRESSION
  8. PREDNISONE TAB [Concomitant]
     Indication: CHRONIC OBSTRUCTIVE PULMONARY DISEASE
  9. ZYRTEC [Concomitant]
     Indication: HYPERSENSITIVITY
  10. SINGULAIR [Concomitant]
     Indication: HYPERSENSITIVITY
  11. IPRATROPIUM BROMIDE [Concomitant]
     Indication: HYPERSENSITIVITY

REACTIONS (3)
  - DRUG INEFFECTIVE [None]
  - DYSURIA [None]
  - INCREASED UPPER AIRWAY SECRETION [None]
